FAERS Safety Report 10885860 (Version 3)
Quarter: 2015Q2

REPORT INFORMATION
  Report Type: Spontaneous
  Country: JP (occurrence: JP)
  Receive Date: 20150304
  Receipt Date: 20150410
  Transmission Date: 20150821
  Serious: Yes (Death, Hospitalization, Other)
  Sender: FDA-Public Use
  Company Number: JP-SA-2015SA022881

PATIENT
  Age: 73 Year
  Sex: Female
  Weight: 39 kg

DRUGS (12)
  1. FUNGUARD [Concomitant]
     Active Substance: MICAFUNGIN SODIUM
     Dates: start: 20150205, end: 20150213
  2. XYLOCAINE [Concomitant]
     Active Substance: LIDOCAINE HYDROCHLORIDE
     Dates: start: 20150202, end: 20150213
  3. RED BLOOD CELLS, CONCENTRATED [Concomitant]
     Active Substance: HUMAN RED BLOOD CELL
     Dates: start: 20150210, end: 20150214
  4. 5-FU [Suspect]
     Active Substance: FLUOROURACIL
     Indication: COLON CANCER
     Dosage: 391.8 MG/M2?2351.1 MG/M2/D1-2
     Route: 040
     Dates: start: 20150121, end: 20150121
  5. DECADRON [Concomitant]
     Active Substance: DEXAMETHASONE
     Dates: start: 20150122, end: 20150123
  6. ALOXI [Concomitant]
     Active Substance: PALONOSETRON HYDROCHLORIDE
     Dates: start: 20150121, end: 20150121
  7. HACHIAZULE [Concomitant]
     Dosage: MOUTHWASH
     Dates: start: 20150202, end: 20150213
  8. DEXART [Concomitant]
     Active Substance: DEXAMETHASONE SODIUM PHOSPHATE
     Dates: start: 20150121, end: 20150121
  9. ELPLAT [Suspect]
     Active Substance: OXALIPLATIN
     Indication: COLON CANCER
     Dosage: INJECTION?78.4 MG/M2
     Route: 041
     Dates: start: 20150121, end: 20150121
  10. FENTANYL. [Concomitant]
     Active Substance: FENTANYL
     Dates: start: 20150205, end: 20150213
  11. CALCIUM LEVOFOLINATE [Suspect]
     Active Substance: LEVOLEUCOVORIN CALCIUM
     Indication: COLON CANCER
     Dosage: 195.9 MG/M2
     Route: 041
     Dates: start: 20150121, end: 20150121
  12. 5-FU [Suspect]
     Active Substance: FLUOROURACIL
     Indication: COLON CANCER
     Route: 041
     Dates: start: 20150121, end: 20150121

REACTIONS (6)
  - Cerebral infarction [Not Recovered/Not Resolved]
  - Febrile neutropenia [Fatal]
  - Platelet count decreased [Fatal]
  - Stomatitis [Not Recovered/Not Resolved]
  - Haemoglobin decreased [Recovering/Resolving]
  - Vomiting [Recovered/Resolved]

NARRATIVE: CASE EVENT DATE: 20150124
